FAERS Safety Report 7071092-9 (Version None)
Quarter: 2010Q4

REPORT INFORMATION
  Report Type: 
  Country: None (occurrence: None)
  Receive Date: 20101029
  Receipt Date: 20101025
  Transmission Date: 20110411
  Serious: No
  Sender: FDA-Public Use
  Company Number: US-PFIZER INC-2010136263

PATIENT
  Sex: Female
  Weight: 68.934 kg

DRUGS (6)
  1. XALATAN [Suspect]
     Indication: INTRAOCULAR PRESSURE INCREASED
     Dosage: UNK
     Route: 047
     Dates: start: 20100401
  2. DOXYCYCLINE [Concomitant]
     Dosage: UNK
  3. HYDROCHLOROTHIAZIDE [Concomitant]
     Dosage: UNK
  4. DETROL LA [Concomitant]
     Dosage: UNK
  5. CARDURA [Concomitant]
     Dosage: UNK
  6. PREVACID [Concomitant]
     Dosage: UNK

REACTIONS (1)
  - SINUS CONGESTION [None]
